FAERS Safety Report 12645092 (Version 5)
Quarter: 2016Q4

REPORT INFORMATION
  Report Type: Spontaneous
  Country: US (occurrence: US)
  Receive Date: 20160811
  Receipt Date: 20161227
  Transmission Date: 20170207
  Serious: Yes (Congenital Anomaly, Other)
  Sender: FDA-Public Use
  Company Number: PHHY2015US127218

PATIENT
  Sex: Female

DRUGS (2)
  1. ZOFRAN [Suspect]
     Active Substance: ONDANSETRON HYDROCHLORIDE
     Indication: FOETAL EXPOSURE DURING PREGNANCY
     Dosage: MOTHER^S DOSE: 8 MG AND 4 MG
     Route: 064
  2. ONDANSETRON HYDROCHLORIDE. [Suspect]
     Active Substance: ONDANSETRON HYDROCHLORIDE
     Indication: FOETAL EXPOSURE DURING PREGNANCY
     Route: 064

REACTIONS (16)
  - Atrial septal defect [Recovered/Resolved]
  - Deafness [Unknown]
  - Photophobia [Unknown]
  - Dysmorphism [Unknown]
  - Cognitive disorder [Unknown]
  - Congenital diaphragmatic hernia [Unknown]
  - Developmental delay [Unknown]
  - Syndactyly [Unknown]
  - Tricuspid valve incompetence [Unknown]
  - Low set ears [Unknown]
  - Right ventricular hypertension [Unknown]
  - Anhedonia [Unknown]
  - Congenital inguinal hernia [Unknown]
  - Aorta hypoplasia [Unknown]
  - Congenital scoliosis [Unknown]
  - Foetal exposure during pregnancy [Unknown]
